FAERS Safety Report 9495782 (Version 1)
Quarter: 2013Q3

REPORT INFORMATION
  Report Type: Spontaneous
  Country: GB (occurrence: GB)
  Receive Date: 20130903
  Receipt Date: 20130903
  Transmission Date: 20140515
  Serious: Yes (Hospitalization)
  Sender: FDA-Public Use
  Company Number: GB-MYLANLABS-2013S1018843

PATIENT
  Sex: Male

DRUGS (1)
  1. KETOPROFEN [Suspect]
     Indication: OSTEOARTHRITIS
     Route: 048
     Dates: start: 20090109, end: 20130108

REACTIONS (2)
  - Coronary artery disease [Not Recovered/Not Resolved]
  - Chest pain [Recovered/Resolved]
